FAERS Safety Report 10178816 (Version 1)
Quarter: 2014Q2

REPORT INFORMATION
  Report Type: Spontaneous
  Country: US (occurrence: None)
  Receive Date: 20140516
  Receipt Date: 20140516
  Transmission Date: 20141212
  Serious: Yes (Life-Threatening, Hospitalization)
  Sender: FDA-Public Use
  Company Number: None

PATIENT
  Age: 63 Year
  Sex: Female
  Weight: 68.04 kg

DRUGS (7)
  1. TEMODAR [Suspect]
     Indication: GLIOBLASTOMA MULTIFORME
     Route: 048
     Dates: start: 20140201, end: 20140402
  2. DILANTIN [Concomitant]
  3. LACOSAMIDE [Concomitant]
  4. DECADRON [Concomitant]
  5. CYMBALTA [Concomitant]
  6. PRILOSEC [Concomitant]
  7. SEROQUEL [Concomitant]

REACTIONS (1)
  - Aplastic anaemia [None]
